FAERS Safety Report 8860009 (Version 2)
Quarter: 2012Q4

REPORT INFORMATION
  Report Type: 
  Country: US (occurrence: US)
  Receive Date: 20121025
  Receipt Date: 20121101
  Transmission Date: 20130627
  Serious: Yes (Hospitalization)
  Sender: FDA-Public Use
  Company Number: PHEH2012US017850

PATIENT
  Age: 10 Year
  Sex: Male

DRUGS (3)
  1. TRILEPTAL [Suspect]
     Indication: CONVULSION
     Dosage: 450 mg, BID
     Route: 048
     Dates: start: 20120907
  2. TRILEPTAL [Suspect]
     Dosage: 600 mg, BID (10 ml BID) three doses
     Route: 048
     Dates: start: 20120911
  3. PEPCID [Concomitant]

REACTIONS (5)
  - Pneumonia aspiration [Recovered/Resolved]
  - Convulsion [Recovered/Resolved]
  - Anticonvulsant drug level decreased [Recovered/Resolved]
  - Vomiting [Recovered/Resolved]
  - Product colour issue [Unknown]
